FAERS Safety Report 10404456 (Version 1)
Quarter: 2014Q2

REPORT INFORMATION
  Report Type: Spontaneous
  Country: US (occurrence: None)
  Receive Date: 20140425
  Receipt Date: 20140425
  Transmission Date: 20141212
  Serious: No
  Sender: FDA-Public Use
  Company Number: 2013SGN00378

PATIENT
  Age: 68 Year
  Sex: Female

DRUGS (1)
  1. ADCETRIS [Suspect]
     Indication: MYCOSIS FUNGOIDES
     Dosage: 1.8 MG/KG , Q21D, INTRAVENOUS
     Route: 042
     Dates: start: 20121218

REACTIONS (2)
  - Pruritus [None]
  - Off label use [None]
